FAERS Safety Report 20593090 (Version 1)
Quarter: 2022Q1

REPORT INFORMATION
  Report Type: Spontaneous
  Country: JP (occurrence: JP)
  Receive Date: 20220315
  Receipt Date: 20220315
  Transmission Date: 20220424
  Serious: Yes (Other)
  Sender: FDA-Public Use
  Company Number: JP-TAKEDA-2020TJP019005

PATIENT

DRUGS (3)
  1. NINLARO [Suspect]
     Active Substance: IXAZOMIB CITRATE
     Indication: Plasma cell myeloma
     Dosage: UNK
     Route: 048
  2. LENALIDOMIDE [Suspect]
     Active Substance: LENALIDOMIDE
     Indication: Plasma cell myeloma
     Dosage: UNK
     Route: 048
  3. DEXAMETHASONE [Suspect]
     Active Substance: DEXAMETHASONE
     Indication: Plasma cell myeloma
     Dosage: UNK
     Route: 048

REACTIONS (16)
  - Plasma cell myeloma [Unknown]
  - Thrombocytopenia [Unknown]
  - Neutropenia [Unknown]
  - Neuropathy peripheral [Unknown]
  - Visual acuity reduced [Unknown]
  - Anaemia [Unknown]
  - Fatigue [Unknown]
  - Constipation [Unknown]
  - Rash [Unknown]
  - Insomnia [Unknown]
  - Diarrhoea [Unknown]
  - Nausea [Unknown]
  - Herpes zoster [Unknown]
  - Vomiting [Unknown]
  - Oedema peripheral [Unknown]
  - Headache [Unknown]
